FAERS Safety Report 4690570-0 (Version None)
Quarter: 2005Q2

REPORT INFORMATION
  Report Type: 
  Country: None (occurrence: None)
  Receive Date: 20050614
  Receipt Date: 20050614
  Transmission Date: 20051028
  Serious: Yes (Hospitalization)
  Sender: FDA-Public Use
  Company Number: None

PATIENT
  Age: 33 Year
  Sex: Female
  Weight: 66.6788 kg

DRUGS (2)
  1. LINEZOLID     600MG [Suspect]
     Indication: SINUSITIS
     Dosage: 600MG    Q 12 HOURS   ORAL
     Route: 048
     Dates: start: 20050419, end: 20050524
  2. LINEZOLID     600MG [Suspect]
     Indication: STAPHYLOCOCCAL INFECTION
     Dosage: 600MG    Q 12 HOURS   ORAL
     Route: 048
     Dates: start: 20050419, end: 20050524

REACTIONS (2)
  - BLOOD AMYLASE INCREASED [None]
  - LIPASE INCREASED [None]
